FAERS Safety Report 7428122-1 (Version None)
Quarter: 2011Q2

REPORT INFORMATION
  Report Type: 
  Country: None (occurrence: None)
  Receive Date: 20110421
  Receipt Date: 20110412
  Transmission Date: 20111010
  Serious: No
  Sender: FDA-Public Use
  Company Number: US-BIOGENIDEC-2011BI008817

PATIENT
  Sex: Male

DRUGS (2)
  1. TYSABRI [Suspect]
     Indication: MULTIPLE SCLEROSIS
     Route: 042
     Dates: start: 20080905, end: 20100212
  2. TYSABRI [Suspect]
     Route: 042
     Dates: start: 20100312, end: 20110301

REACTIONS (14)
  - BALANCE DISORDER [None]
  - MULTIPLE SCLEROSIS [None]
  - WEIGHT DECREASED [None]
  - BLINDNESS [None]
  - TREATMENT NONCOMPLIANCE [None]
  - MENTAL DISORDER [None]
  - STRESS [None]
  - DRUG ABUSE [None]
  - BACK PAIN [None]
  - VISUAL ACUITY REDUCED [None]
  - NIGHT SWEATS [None]
  - BURNING SENSATION [None]
  - PAIN IN EXTREMITY [None]
  - DEPRESSION [None]
